FAERS Safety Report 6924441-3 (Version None)
Quarter: 2010Q3

REPORT INFORMATION
  Report Type: 
  Country: None (occurrence: None)
  Receive Date: 20100810
  Receipt Date: 20100730
  Transmission Date: 20110219
  Serious: Yes (Other)
  Sender: FDA-Public Use
  Company Number: 015563

PATIENT
  Sex: Male
  Weight: 90 kg

DRUGS (4)
  1. EDEX [Suspect]
     Indication: ERECTILE DYSFUNCTION
     Dosage: VERY IRREGULAR INJECTIONS OF APPROXIMATELY 7MCG INTRACAVERNOUS; 0.25ML INTRACAVERNOUS
     Route: 017
     Dates: start: 20100224, end: 20100619
  2. EDEX [Suspect]
     Indication: PROSTATECTOMY
     Dosage: VERY IRREGULAR INJECTIONS OF APPROXIMATELY 7MCG INTRACAVERNOUS; 0.25ML INTRACAVERNOUS
     Route: 017
     Dates: start: 20100224, end: 20100619
  3. EDEX [Suspect]
     Indication: ERECTILE DYSFUNCTION
     Dosage: VERY IRREGULAR INJECTIONS OF APPROXIMATELY 7MCG INTRACAVERNOUS; 0.25ML INTRACAVERNOUS
     Route: 017
     Dates: start: 20090101
  4. EDEX [Suspect]
     Indication: PROSTATECTOMY
     Dosage: VERY IRREGULAR INJECTIONS OF APPROXIMATELY 7MCG INTRACAVERNOUS; 0.25ML INTRACAVERNOUS
     Route: 017
     Dates: start: 20090101

REACTIONS (5)
  - AMNESIA [None]
  - DELIRIUM [None]
  - DISORIENTATION [None]
  - FEELING HOT [None]
  - PYREXIA [None]
